FAERS Safety Report 4901108-4 (Version None)
Quarter: 2006Q1

REPORT INFORMATION
  Report Type: 
  Country: None (occurrence: None)
  Receive Date: 20060113
  Receipt Date: 20050926
  Transmission Date: 20060701
  Serious: No
  Sender: FDA-Public Use
  Company Number: 2005SP000829

PATIENT
  Age: 61 Year
  Sex: Female
  Weight: 88.4514 kg

DRUGS (5)
  1. LUNESTA [Suspect]
     Indication: CIRCADIAN RHYTHM SLEEP DISORDER
     Dosage: 3 MG; HS; ORAL
     Route: 048
     Dates: start: 20050512, end: 20050516
  2. HYDROCHLOROTHIAZIDE [Concomitant]
  3. ROBINUL [Concomitant]
  4. PROTRONIX [Concomitant]
  5. LIBRAX [Concomitant]

REACTIONS (1)
  - DYSGEUSIA [None]
